FAERS Safety Report 4978395-X (Version None)
Quarter: 2006Q1

REPORT INFORMATION
  Report Type: 
  Country: None (occurrence: None)
  Receive Date: 20060228
  Receipt Date: 20050922
  Transmission Date: 20060701
  Serious: Yes (Hospitalization)
  Sender: FDA-Public Use
  Company Number: 2005133053

PATIENT
  Age: 76 Year
  Sex: Female
  Weight: 65.7716 kg

DRUGS (3)
  1. NIFEDIPINE [Suspect]
     Indication: HYPERTENSION
     Dosage: 30 MG (30 MG,QD), ORAL
     Route: 048
     Dates: start: 20050101
  2. AVAPRO [Concomitant]
  3. FOSAMAX [Concomitant]

REACTIONS (2)
  - BLOOD POTASSIUM DECREASED [None]
  - SYNCOPE [None]
